FAERS Safety Report 10177122 (Version 1)
Quarter: 2014Q2

REPORT INFORMATION
  Report Type: Spontaneous
  Country: US (occurrence: None)
  Receive Date: 20140515
  Receipt Date: 20140515
  Transmission Date: 20141212
  Serious: Yes (Other)
  Sender: FDA-Public Use
  Company Number: None

PATIENT
  Age: 59 Year
  Sex: Female

DRUGS (1)
  1. EMBREL [Suspect]
     Indication: RHEUMATOID ARTHRITIS
     Dosage: Q WK
     Route: 058
     Dates: start: 20121221, end: 20140424

REACTIONS (1)
  - Hypergammaglobulinaemia benign monoclonal [None]
